FAERS Safety Report 8943509 (Version 1)
Quarter: 2012Q4

REPORT INFORMATION
  Report Type: Spontaneous
  Country: GB (occurrence: None)
  Receive Date: 20121123
  Receipt Date: 20121123
  Transmission Date: 20130627
  Serious: Yes (Other)
  Sender: FDA-Public Use
  Company Number: DSA_60951_2012

PATIENT
  Age: 54 Year
  Sex: Male

DRUGS (8)
  1. METRONIDAZOLE (METRONIDAZOLE) [Suspect]
     Indication: PRODUCT USED FOR UNKNOWN INDICATION
     Dosage: (DF)
     Dates: start: 20121031, end: 20121105
  2. SIMVASTATIN [Concomitant]
  3. VISCOTEARS [Concomitant]
  4. METFORMIN [Concomitant]
  5. LACRI-LUBE [Concomitant]
  6. OMEPRAZOLE [Concomitant]
  7. VITAMIN D NOS [Concomitant]
  8. INFLUENZA VIRUS VACCINE [Concomitant]

REACTIONS (4)
  - Ataxia [None]
  - Dizziness [None]
  - Diarrhoea [None]
  - Vomiting [None]
